FAERS Safety Report 13210360 (Version 2)
Quarter: 2017Q1

REPORT INFORMATION
  Report Type: Spontaneous
  Country: JP (occurrence: JP)
  Receive Date: 20170210
  Receipt Date: 20170320
  Transmission Date: 20170428
  Serious: Yes (Life-Threatening, Disabling)
  Sender: FDA-Public Use
  Company Number: JP-ELI_LILLY_AND_COMPANY-JP201702003063

PATIENT
  Age: 46 Year
  Sex: Male
  Weight: 73 kg

DRUGS (6)
  1. HEPARIN [Suspect]
     Active Substance: HEPARIN SODIUM
     Indication: ACUTE MYOCARDIAL INFARCTION
     Dosage: 5000 IU, SINGLE
     Route: 042
     Dates: start: 20140331, end: 20140331
  2. ASPIRIN                            /00002701/ [Suspect]
     Active Substance: ASPIRIN
     Dosage: 100 MG, SINGLE
     Route: 048
     Dates: start: 20140331, end: 20140331
  3. HEPARIN [Suspect]
     Active Substance: HEPARIN SODIUM
     Dosage: 3000 IU, SINGLE
     Route: 042
     Dates: start: 20140331, end: 20140331
  4. ASPIRIN                            /00002701/ [Suspect]
     Active Substance: ASPIRIN
     Indication: ACUTE MYOCARDIAL INFARCTION
     Dosage: 200 MG, UNKNOWN
     Route: 048
  5. PRASUGREL HYDROCHLORIDE [Suspect]
     Active Substance: PRASUGREL HYDROCHLORIDE
     Indication: ACUTE MYOCARDIAL INFARCTION
     Dosage: 20 MG, QD
     Route: 048
     Dates: start: 20140331, end: 20140331
  6. HEPARIN [Suspect]
     Active Substance: HEPARIN SODIUM
     Dosage: 5000 IU, SINGLE
     Route: 042
     Dates: start: 20140331, end: 20140331

REACTIONS (5)
  - Aphasia [Not Recovered/Not Resolved]
  - Hemiplegia [Not Recovered/Not Resolved]
  - Monoplegia [Not Recovered/Not Resolved]
  - Subarachnoid haemorrhage [Recovered/Resolved with Sequelae]
  - Nervous system disorder [Not Recovered/Not Resolved]

NARRATIVE: CASE EVENT DATE: 20140331
